FAERS Safety Report 5679227-7 (Version None)
Quarter: 2008Q1

REPORT INFORMATION
  Report Type: 
  Country: None (occurrence: None)
  Receive Date: 20080325
  Receipt Date: 20080314
  Transmission Date: 20080703
  Serious: Yes (Other)
  Sender: FDA-Public Use
  Company Number: DK-BRISTOL-MYERS SQUIBB COMPANY-14123699

PATIENT
  Age: 49 Year
  Sex: Male

DRUGS (4)
  1. ENDOXAN [Suspect]
     Indication: CHEMOTHERAPY
     Dates: start: 20040101
  2. RADIATION THERAPY [Suspect]
     Dosage: IRRADIATION (STRENGTH 12.5 GY/7 FRACTIONS, DOSAGE 3 GY PER DAY).
     Dates: start: 20041025, end: 20041028
  3. CARBOPLATIN [Concomitant]
  4. GLUCOCORTICOID [Concomitant]

REACTIONS (2)
  - BLINDNESS [None]
  - CATARACT [None]
